FAERS Safety Report 4614731-1 (Version None)
Quarter: 2005Q1

REPORT INFORMATION
  Report Type: 
  Country: None (occurrence: None)
  Receive Date: 20050322
  Receipt Date: 20050309
  Transmission Date: 20050727
  Serious: Yes (Hospitalization)
  Sender: FDA-Public Use
  Company Number: US-KINGPHARMUSA00001-K200500340

PATIENT
  Age: 57 Year
  Sex: Female

DRUGS (9)
  1. SEPTRA [Suspect]
     Indication: INFECTION PROPHYLAXIS
     Dosage: 480 MG, QD
     Route: 048
     Dates: start: 20041115, end: 20050210
  2. AZATHIOPRINE [Suspect]
     Indication: IMMUNOSUPPRESSION
     Dosage: 75 MG, QD
     Route: 048
     Dates: start: 20041115, end: 20050212
  3. PREDNISOLONE [Concomitant]
     Dates: start: 20041115
  4. VALGANCICLOVIR [Suspect]
     Indication: ANTIVIRAL PROPHYLAXIS
     Dosage: 900 MG, QD
     Route: 048
     Dates: start: 20041125, end: 20050212
  5. ACYCLOVIR [Concomitant]
     Dates: start: 20041115, end: 20050210
  6. RANITIDINE HYDROCHLORIDE [Concomitant]
     Dates: start: 20041115
  7. ASPIRIN [Concomitant]
     Dates: start: 20041123
  8. PARACETAMOL [Concomitant]
     Dates: start: 20041115
  9. TACROLIMUS [Concomitant]
     Dates: start: 20041115

REACTIONS (2)
  - ANAEMIA [None]
  - NEUTROPENIA [None]
